FAERS Safety Report 18158520 (Version 3)
Quarter: 2020Q4

REPORT INFORMATION
  Report Type: Spontaneous
  Country: JP (occurrence: JP)
  Receive Date: 20200817
  Receipt Date: 20201207
  Transmission Date: 20210113
  Serious: Yes (Other)
  Sender: FDA-Public Use
  Company Number: JP-HQ SPECIALTY-JP-2020INT000096

PATIENT
  Age: 2 Month
  Sex: Male

DRUGS (2)
  1. DEXMEDETOMIDINE HYDROCHLORIDE. [Suspect]
     Active Substance: DEXMEDETOMIDINE HYDROCHLORIDE
     Dosage: 0.75 ?G/KG, 1 HR, STOPPED
     Route: 065
  2. DEXMEDETOMIDINE HYDROCHLORIDE. [Suspect]
     Active Substance: DEXMEDETOMIDINE HYDROCHLORIDE
     Indication: SEDATION
     Dosage: 0.25 ?G/KG, 1 HR
     Route: 065

REACTIONS (7)
  - Respiratory rate decreased [Recovered/Resolved]
  - Product administered to patient of inappropriate age [Unknown]
  - Sinus bradycardia [Recovered/Resolved]
  - Atrioventricular block [Recovered/Resolved]
  - Infant irritability [Recovered/Resolved]
  - Sinus arrest [Recovered/Resolved]
  - Bradyarrhythmia [Recovered/Resolved]
